FAERS Safety Report 5274312-6 (Version None)
Quarter: 2007Q1

REPORT INFORMATION
  Report Type: 
  Country: None (occurrence: None)
  Receive Date: 20070323
  Receipt Date: 20070316
  Transmission Date: 20070707
  Serious: Yes (Hospitalization)
  Sender: FDA-Public Use
  Company Number: IT-AMGEN-UK215447

PATIENT
  Age: 53 Year
  Sex: Female

DRUGS (2)
  1. NEULASTA [Suspect]
     Indication: CHEMOTHERAPY
     Route: 065
     Dates: start: 20060213, end: 20060213
  2. PACLITAXEL [Suspect]
     Route: 065
     Dates: start: 20060210, end: 20060210

REACTIONS (2)
  - COUGH [None]
  - PYREXIA [None]
